FAERS Safety Report 8536706-2 (Version None)
Quarter: 2012Q3

REPORT INFORMATION
  Report Type: 
  Country: None (occurrence: None)
  Receive Date: 20120725
  Receipt Date: 20120719
  Transmission Date: 20120928
  Serious: Yes (Other)
  Sender: FDA-Public Use
  Company Number: DK-BAYER-2012-072022

PATIENT
  Sex: Female

DRUGS (3)
  1. MIRENA [Suspect]
     Dosage: UNK
     Dates: start: 20120501, end: 20120101
  2. MIRENA [Suspect]
     Indication: MENORRHAGIA
     Dosage: UNK
     Dates: start: 20080101, end: 20120501
  3. MIRENA [Suspect]
     Dosage: UNK
     Dates: start: 20120718

REACTIONS (4)
  - DEVICE RELATED INFECTION [None]
  - METRORRHAGIA [None]
  - ABDOMINAL INFECTION [None]
  - MENORRHAGIA [None]
